FAERS Safety Report 6381777-5 (Version None)
Quarter: 2009Q3

REPORT INFORMATION
  Report Type: 
  Country: None (occurrence: None)
  Receive Date: 20090930
  Receipt Date: 20070924
  Transmission Date: 20100115
  Serious: Yes (Other)
  Sender: FDA-Public Use
  Company Number: US-ASTRAZENECA-2006UW22440

PATIENT
  Age: 44 Year
  Sex: Male
  Weight: 121.6 kg

DRUGS (16)
  1. SEROQUEL [Suspect]
     Indication: DEPRESSION
     Route: 048
     Dates: start: 20020101, end: 20040101
  2. SEROQUEL [Suspect]
     Indication: INSOMNIA
     Route: 048
     Dates: start: 20020101, end: 20040101
  3. SEROQUEL [Suspect]
     Indication: IMPULSE-CONTROL DISORDER
     Route: 048
     Dates: start: 20020101, end: 20040101
  4. SEROQUEL [Suspect]
     Indication: SLEEP DISORDER
     Route: 048
     Dates: start: 20020101, end: 20040101
  5. SEROQUEL [Suspect]
     Indication: ANGER
     Route: 048
     Dates: start: 20020101, end: 20040101
  6. SEROQUEL [Suspect]
     Dosage: 25 MG-50 MG
     Route: 048
     Dates: start: 20021210
  7. SEROQUEL [Suspect]
     Dosage: 25 MG-50 MG
     Route: 048
     Dates: start: 20021210
  8. SEROQUEL [Suspect]
     Dosage: 25 MG-50 MG
     Route: 048
     Dates: start: 20021210
  9. SEROQUEL [Suspect]
     Dosage: 25 MG-50 MG
     Route: 048
     Dates: start: 20021210
  10. SEROQUEL [Suspect]
     Dosage: 25 MG-50 MG
     Route: 048
     Dates: start: 20021210
  11. LEXAPRO [Concomitant]
     Dates: start: 20030101
  12. DEPAKOTE [Concomitant]
     Dosage: STRENGTH 250MG, 500MG. DOSE 1500MG AT NIGHT
     Dates: start: 20011120
  13. ZETIA [Concomitant]
     Dates: start: 20040126
  14. OXYCODO-APAP [Concomitant]
     Dosage: STRENGH 10-325
     Dates: start: 20040618
  15. METHADONE HYDROCHLORIDE [Concomitant]
     Dates: start: 20040725
  16. DOXEPIN HCL [Concomitant]
     Dates: start: 20041021

REACTIONS (2)
  - DIABETES MELLITUS [None]
  - NEUROPATHY PERIPHERAL [None]
